FAERS Safety Report 16843767 (Version 1)
Quarter: 2019Q3

REPORT INFORMATION
  Report Type: Spontaneous
  Country: US (occurrence: US)
  Receive Date: 20190924
  Receipt Date: 20190924
  Transmission Date: 20191005
  Serious: No
  Sender: FDA-Public Use
  Company Number: US-BIOGEN-2019BI00784239

PATIENT
  Age: 55 Year
  Sex: Female

DRUGS (1)
  1. AVONEX [Suspect]
     Active Substance: INTERFERON BETA-1A
     Indication: MULTIPLE SCLEROSIS
     Route: 065
     Dates: start: 20190907

REACTIONS (11)
  - Feeling abnormal [Not Recovered/Not Resolved]
  - Laziness [Not Recovered/Not Resolved]
  - Eye discharge [Recovered/Resolved]
  - Contusion [Unknown]
  - Oropharyngeal pain [Recovered/Resolved]
  - Migraine [Not Recovered/Not Resolved]
  - Eyelid injury [Not Recovered/Not Resolved]
  - Fatigue [Not Recovered/Not Resolved]
  - Vomiting [Recovered/Resolved]
  - Fall [Recovered/Resolved]
  - Eye disorder [Recovered/Resolved]

NARRATIVE: CASE EVENT DATE: 2019
